FAERS Safety Report 6667557-1 (Version None)
Quarter: 2010Q1

REPORT INFORMATION
  Report Type: 
  Country: None (occurrence: None)
  Receive Date: 20100331
  Receipt Date: 20100318
  Transmission Date: 20100710
  Serious: Yes (Hospitalization)
  Sender: FDA-Public Use
  Company Number: 005986

PATIENT
  Sex: Female

DRUGS (8)
  1. CERTOLIZUMAB PEGOL (CDP870) [Suspect]
     Indication: RHEUMATOID ARTHRITIS
     Dosage: (200 MG 1X/2 WEEKS, DOSE UNKNOWN SSUBCUTANEOUS
     Route: 058
     Dates: start: 20091203
  2. CELECOXIB [Concomitant]
  3. ISONIAZID [Concomitant]
  4. PYRIDOXAL PHOSPHATE [Concomitant]
  5. PREDNISOLONE [Concomitant]
  6. VALACYCLOVIR [Concomitant]
  7. SALAZOSULFAPYRIDINE [Concomitant]
  8. METHOTREXATE [Concomitant]

REACTIONS (14)
  - ALANINE AMINOTRANSFERASE INCREASED [None]
  - ASPARTATE AMINOTRANSFERASE INCREASED [None]
  - BLOOD ALKALINE PHOSPHATASE INCREASED [None]
  - CHOLANGITIS SUPPURATIVE [None]
  - CHOLECYSTITIS ACUTE [None]
  - HAEMORRHAGE [None]
  - HERPES VIRUS INFECTION [None]
  - LIP ULCERATION [None]
  - MOUTH ULCERATION [None]
  - PAIN [None]
  - PANCREATITIS ACUTE [None]
  - PERITONITIS [None]
  - STOMATITIS [None]
  - VULVAL ULCERATION [None]
